FAERS Safety Report 16159549 (Version 2)
Quarter: 2019Q3

REPORT INFORMATION
  Report Type: Spontaneous
  Country: US (occurrence: US)
  Receive Date: 20190404
  Receipt Date: 20190906
  Transmission Date: 20191004
  Serious: No
  Sender: FDA-Public Use
  Company Number: US-SA-2019SA088752

PATIENT
  Age: 68 Year
  Sex: Female
  Weight: 54.4 kg

DRUGS (2)
  1. PRALUENT [Suspect]
     Active Substance: ALIROCUMAB
     Indication: BLOOD CHOLESTEROL
     Dosage: 150 MG
     Dates: start: 20190213, end: 20190213
  2. PRALUENT [Suspect]
     Active Substance: ALIROCUMAB
     Dosage: 150 MG
     Dates: start: 20190303

REACTIONS (9)
  - Condition aggravated [Not Recovered/Not Resolved]
  - Swelling [Unknown]
  - Rash pruritic [Not Recovered/Not Resolved]
  - Nerve injury [Unknown]
  - Erythema [Recovered/Resolved]
  - Burning sensation [Unknown]
  - Discomfort [Unknown]
  - Herpes zoster [Not Recovered/Not Resolved]
  - Pain [Unknown]

NARRATIVE: CASE EVENT DATE: 2019
